FAERS Safety Report 8247104-3 (Version None)
Quarter: 2012Q1

REPORT INFORMATION
  Report Type: 
  Country: None (occurrence: None)
  Receive Date: 20120329
  Receipt Date: 20120329
  Transmission Date: 20120608
  Serious: Yes (Other)
  Sender: FDA-Public Use
  Company Number: None

PATIENT
  Age: 39 Year
  Sex: Female
  Weight: 121.1104 kg

DRUGS (2)
  1. DEPAKOTE [Suspect]
  2. HALDOL [Suspect]

REACTIONS (4)
  - DIABETES MELLITUS [None]
  - AMNESIA [None]
  - RENAL FAILURE [None]
  - CARDIAC DISORDER [None]
